FAERS Safety Report 8793359 (Version 1)
Quarter: 2012Q4

REPORT INFORMATION
  Report Type: 
  Country: GB (occurrence: GB)
  Receive Date: 20120918
  Receipt Date: 20120918
  Transmission Date: 20130627
  Serious: Yes (Hospitalization, Other)
  Sender: FDA-Public Use
  Company Number: PHHY2012GB079930

PATIENT
  Age: 88 Year
  Sex: Male

DRUGS (10)
  1. COLCHICINE [Suspect]
     Indication: GOUT
     Dosage: 500 ug, UNK
     Route: 048
     Dates: start: 20120611, end: 20120612
  2. WARFARIN [Interacting]
     Dosage: UNK
  3. BUMETANIDE [Concomitant]
  4. DIGOXIN [Concomitant]
  5. OMEPRAZOLE [Concomitant]
  6. PIROXICAM [Concomitant]
  7. RAMIPRIL [Concomitant]
  8. FLUTICASONE W/SALMETEROL [Concomitant]
  9. SPIRONOLACTONE [Concomitant]
  10. VENTOLIN [Concomitant]

REACTIONS (2)
  - International normalised ratio increased [Recovering/Resolving]
  - Drug interaction [Unknown]
